FAERS Safety Report 12857227 (Version 1)
Quarter: 2016Q4

REPORT INFORMATION
  Report Type: Spontaneous
  Country: GB (occurrence: GB)
  Receive Date: 20161018
  Receipt Date: 20161018
  Transmission Date: 20170207
  Serious: Yes (Death, Other)
  Sender: FDA-Public Use
  Company Number: GB-PFIZER INC-2016477902

PATIENT
  Age: 61 Year
  Sex: Male

DRUGS (13)
  1. ASPIRIN /00002701/ [Concomitant]
     Active Substance: ASPIRIN
  2. CLOPIDOGREL [Concomitant]
     Active Substance: CLOPIDOGREL BISULFATE
  3. NICORANDIL [Concomitant]
     Active Substance: NICORANDIL
  4. VALSARTAN. [Concomitant]
     Active Substance: VALSARTAN
  5. FRUSEMIDE /00032601/ [Concomitant]
     Active Substance: FUROSEMIDE
  6. LANSOPRAZOLE. [Concomitant]
     Active Substance: LANSOPRAZOLE
  7. QUETIAPINE. [Concomitant]
     Active Substance: QUETIAPINE
  8. EPLERENONE. [Concomitant]
     Active Substance: EPLERENONE
  9. ISOSORBIDE MONONITRATE. [Concomitant]
     Active Substance: ISOSORBIDE MONONITRATE
  10. ATORVASTATIN [Suspect]
     Active Substance: ATORVASTATIN
     Indication: ISCHAEMIC HEART DISEASE PROPHYLAXIS
     Dosage: 80 MG, UNK
     Route: 048
  11. TEMAZEPAM. [Concomitant]
     Active Substance: TEMAZEPAM
  12. DULOXETINE. [Concomitant]
     Active Substance: DULOXETINE
  13. MONTELUKAST [Concomitant]
     Active Substance: MONTELUKAST SODIUM

REACTIONS (4)
  - Ascites [Not Recovered/Not Resolved]
  - Hepatic cirrhosis [Not Recovered/Not Resolved]
  - Jaundice [Not Recovered/Not Resolved]
  - Cholestasis [Fatal]
